FAERS Safety Report 15192344 (Version 12)
Quarter: 2024Q2

REPORT INFORMATION
  Report Type: Report from Study
  Country: JP (occurrence: JP)
  Receive Date: 20180724
  Receipt Date: 20240624
  Transmission Date: 20240716
  Serious: Yes (Hospitalization)
  Sender: FDA-Public Use
  Company Number: JP-ABBVIE-18S-087-2427574-00

PATIENT
  Age: 73 Year
  Sex: Female
  Weight: 52 kg

DRUGS (4)
  1. CARBIDOPA\LEVODOPA [Suspect]
     Active Substance: CARBIDOPA\LEVODOPA
     Indication: Parkinson^s disease
     Dosage: MD: 8.5 ML CD: 1.4 ML/HR X 16 HRS
     Route: 050
     Dates: start: 20180418, end: 20200228
  2. CARBIDOPA\LEVODOPA [Suspect]
     Active Substance: CARBIDOPA\LEVODOPA
  3. ZONISAMIDE AL [Concomitant]
     Indication: Parkinson^s disease
     Route: 048
  4. ROPINIROLE [Concomitant]
     Active Substance: ROPINIROLE
     Indication: Parkinson^s disease
     Route: 048

REACTIONS (16)
  - Hypoaesthesia [Unknown]
  - Malaise [Unknown]
  - Henoch-Schonlein purpura [Unknown]
  - Hospitalisation [Recovered/Resolved]
  - Mobility decreased [Unknown]
  - Product administration error [Unknown]
  - Product storage error [Unknown]
  - Musculoskeletal disorder [Unknown]
  - Miliaria [Unknown]
  - Hypophagia [Unknown]
  - Weight decreased [Unknown]
  - Dyspnoea [Unknown]
  - Tremor [Unknown]
  - Freezing phenomenon [Unknown]
  - Drug ineffective [Unknown]
  - Adverse reaction [Unknown]

NARRATIVE: CASE EVENT DATE: 20180701
